FAERS Safety Report 16161609 (Version 1)
Quarter: 2019Q2

REPORT INFORMATION
  Report Type: Spontaneous
  Country: NL (occurrence: NL)
  Receive Date: 20190405
  Receipt Date: 20190405
  Transmission Date: 20190711
  Serious: Yes (Other)
  Sender: FDA-Public Use
  Company Number: NL-AUROBINDO-AUR-APL-2019-017792

PATIENT

DRUGS (1)
  1. PAROXETINE FILM-COATED TABLET [Suspect]
     Active Substance: PAROXETINE
     Indication: DEPRESSION
     Dosage: UNK UNK, ONCE A DAY
     Route: 065
     Dates: start: 2003

REACTIONS (4)
  - Fatigue [Unknown]
  - Anger [Unknown]
  - Drug dependence [Unknown]
  - Aggression [Unknown]
